FAERS Safety Report 9449562 (Version 5)
Quarter: 2014Q2

REPORT INFORMATION
  Report Type: Spontaneous
  Country: US (occurrence: US)
  Receive Date: 20130809
  Receipt Date: 20140430
  Transmission Date: 20141212
  Serious: Yes (Death, Hospitalization, Other)
  Sender: FDA-Public Use
  Company Number: US-MERCK-1308USA003242

PATIENT
  Sex: Female
  Weight: 101.13 kg

DRUGS (6)
  1. JANUVIA [Suspect]
     Indication: TYPE 2 DIABETES MELLITUS
     Dosage: 100 MG, QD
     Route: 048
     Dates: start: 20090910, end: 20110721
  2. VICTOZA [Suspect]
     Indication: TYPE 2 DIABETES MELLITUS
     Dosage: UNK
     Dates: start: 20111025, end: 20120203
  3. METFORMIN [Concomitant]
     Indication: TYPE 2 DIABETES MELLITUS
  4. HUMALOG [Concomitant]
     Indication: TYPE 2 DIABETES MELLITUS
  5. LEVEMIR [Concomitant]
     Indication: TYPE 2 DIABETES MELLITUS
  6. NOVOLOG [Concomitant]
     Indication: TYPE 2 DIABETES MELLITUS

REACTIONS (49)
  - Adenocarcinoma pancreas [Fatal]
  - Syncope [Not Recovered/Not Resolved]
  - Incoherent [Unknown]
  - Anaemia [Unknown]
  - Blood disorder [Unknown]
  - Dehydration [Unknown]
  - Squamous cell carcinoma of the tongue [Unknown]
  - Glossectomy [Not Recovered/Not Resolved]
  - Mucocutaneous candidiasis [Unknown]
  - Hyperglycaemia [Unknown]
  - Tongue cancer recurrent [Not Recovered/Not Resolved]
  - Acute respiratory failure [Not Recovered/Not Resolved]
  - Hypotension [Unknown]
  - Gastrointestinal haemorrhage [Unknown]
  - Drug intolerance [Unknown]
  - Anaemia [Not Recovered/Not Resolved]
  - Pancreatic carcinoma [Fatal]
  - Abdominal pain lower [Unknown]
  - Vomiting [Not Recovered/Not Resolved]
  - Diarrhoea [Unknown]
  - Abdominal pain upper [Unknown]
  - Rash maculo-papular [Unknown]
  - Mucosal inflammation [Unknown]
  - Cachexia [Unknown]
  - Dysgeusia [Unknown]
  - Parosmia [Unknown]
  - Odynophagia [Unknown]
  - Hyperglycaemia [Unknown]
  - Hyperlipidaemia [Unknown]
  - Hypertension [Unknown]
  - Coronary artery disease [Unknown]
  - Osteoarthritis [Unknown]
  - Depression [Unknown]
  - Intestinal resection [Unknown]
  - Intestinal obstruction [Unknown]
  - Salpingo-oophorectomy bilateral [Unknown]
  - Radiotherapy to pancreas [Unknown]
  - Cough [Unknown]
  - Skin mass [Unknown]
  - Blood glucose increased [Unknown]
  - Cardiac murmur [Unknown]
  - Vision blurred [Unknown]
  - Dizziness [Unknown]
  - Dyspnoea [Unknown]
  - Joint swelling [Unknown]
  - Drug ineffective [Unknown]
  - Oedema peripheral [Unknown]
  - Diarrhoea [Unknown]
  - Constipation [Unknown]
